FAERS Safety Report 24654346 (Version 2)
Quarter: 2025Q1

REPORT INFORMATION
  Report Type: Spontaneous
  Country: PL (occurrence: PL)
  Receive Date: 20241122
  Receipt Date: 20250130
  Transmission Date: 20250409
  Serious: Yes (Other)
  Sender: NOVARTIS
  Company Number: PL-002147023-NVSC2024PL223200

PATIENT
  Age: 10 Year
  Sex: Female

DRUGS (2)
  1. KYMRIAH [Suspect]
     Active Substance: TISAGENLECLEUCEL
     Indication: Acute leukaemia
     Route: 065
     Dates: start: 202209, end: 202209
  2. SORAFENIB [Concomitant]
     Active Substance: SORAFENIB
     Indication: Acute leukaemia
     Route: 065

REACTIONS (3)
  - Cytokine release syndrome [Unknown]
  - Post-depletion B-cell recovery [Unknown]
  - Product use in unapproved indication [Unknown]
